FAERS Safety Report 20999684 (Version 2)
Quarter: 2022Q2

REPORT INFORMATION
  Report Type: Spontaneous
  Country: FR (occurrence: FR)
  Receive Date: 20220623
  Receipt Date: 20220629
  Transmission Date: 20220721
  Serious: Yes (Other)
  Sender: FDA-Public Use
  Company Number: None

PATIENT
  Age: 69 Year
  Sex: Female

DRUGS (7)
  1. LETROZOLE [Suspect]
     Active Substance: LETROZOLE
     Indication: Breast cancer
     Dosage: 2.5 MILLIGRAM, QD,
     Route: 048
     Dates: start: 20211019
  2. KISQALI [Suspect]
     Active Substance: RIBOCICLIB
     Indication: Breast cancer
     Dosage: 12.6 GRAM, MONTHLY
     Route: 048
     Dates: start: 20211019, end: 20220511
  3. SINEMET [Concomitant]
     Active Substance: CARBIDOPA\LEVODOPA
     Dosage: 5 DOSAGE FORM, QD
     Route: 048
  4. AMANTADINE HYDROCHLORIDE [Concomitant]
     Active Substance: AMANTADINE HYDROCHLORIDE
     Dosage: 3 DOSAGE FORM, QD
     Route: 048
  5. LEVOTHYROXINE [Concomitant]
     Active Substance: LEVOTHYROXINE
     Dosage: 1 DOSAGE FORM, QD
     Route: 048
     Dates: start: 1993
  6. REQUIP [Concomitant]
     Active Substance: ROPINIROLE HYDROCHLORIDE
     Dosage: 6 MILLIGRAM, QD
     Route: 048
  7. APOMORPHINE [Concomitant]
     Active Substance: APOMORPHINE
     Dosage: 4 MILLIGRAM, QH
     Route: 058

REACTIONS (2)
  - Keratitis [Not Recovered/Not Resolved]
  - Cornea verticillata [Not Recovered/Not Resolved]

NARRATIVE: CASE EVENT DATE: 20211001
